FAERS Safety Report 13602670 (Version 4)
Quarter: 2017Q3

REPORT INFORMATION
  Report Type: Spontaneous
  Country: US (occurrence: US)
  Receive Date: 20170601
  Receipt Date: 20170825
  Transmission Date: 20171127
  Serious: Yes (Other)
  Sender: FDA-Public Use
  Company Number: US-PFIZER INC-2017236033

PATIENT
  Age: 42 Year
  Sex: Male
  Weight: 181.41 kg

DRUGS (6)
  1. ZOLOFT [Concomitant]
     Active Substance: SERTRALINE HYDROCHLORIDE
     Indication: AGORAPHOBIA
  2. CLARITIN [Concomitant]
     Active Substance: LORATADINE
     Dosage: UNK
     Dates: start: 201001
  3. ZOLOFT [Concomitant]
     Active Substance: SERTRALINE HYDROCHLORIDE
     Indication: PANIC DISORDER
     Dosage: 50 MG, UNK
     Route: 048
     Dates: start: 199903
  4. ALPRAZOLAM. [Interacting]
     Active Substance: ALPRAZOLAM
     Indication: POST-TRAUMATIC STRESS DISORDER
     Dosage: 0.5 MG, 2X/DAY
     Route: 048
     Dates: start: 201110
  5. ZOLOFT [Concomitant]
     Active Substance: SERTRALINE HYDROCHLORIDE
     Indication: POST-TRAUMATIC STRESS DISORDER
  6. ALPRAZOLAM. [Suspect]
     Active Substance: ALPRAZOLAM
     Indication: PANIC DISORDER
     Dosage: 1 MG, 2X/DAY
     Route: 048
     Dates: start: 201110

REACTIONS (10)
  - Feeling abnormal [Recovered/Resolved]
  - Myocardial infarction [Unknown]
  - Drug effect increased [Recovered/Resolved]
  - Feeling drunk [Recovered/Resolved]
  - Drug ineffective [Recovered/Resolved]
  - Anxiety [Recovered/Resolved]
  - Heart rate decreased [Recovered/Resolved]
  - Drug effect decreased [Recovered/Resolved]
  - Sedation [Recovered/Resolved]
  - Food interaction [Recovered/Resolved]

NARRATIVE: CASE EVENT DATE: 20170525
